FAERS Safety Report 9776525 (Version 3)
Quarter: 2014Q1

REPORT INFORMATION
  Report Type: Spontaneous
  Country: US (occurrence: US)
  Receive Date: 20131220
  Receipt Date: 20140211
  Transmission Date: 20141002
  Serious: Yes (Hospitalization, Other)
  Sender: FDA-Public Use
  Company Number: US-GILEAD-2013-0090470

PATIENT
  Age: 17 Year
  Sex: Female

DRUGS (4)
  1. LETAIRIS [Suspect]
     Indication: PULMONARY HYPERTENSION
     Dosage: 10 MG, QD
     Route: 065
     Dates: start: 20090422
  2. LETAIRIS [Suspect]
     Indication: HEART DISEASE CONGENITAL
  3. ADCIRCA [Concomitant]
  4. REMODULIN [Concomitant]

REACTIONS (2)
  - Lung transplant [Unknown]
  - Heart transplant [Unknown]
